FAERS Safety Report 7351065-9 (Version None)
Quarter: 2011Q1

REPORT INFORMATION
  Report Type: 
  Country: None (occurrence: None)
  Receive Date: 20110314
  Receipt Date: 20110301
  Transmission Date: 20110831
  Serious: Yes (Other)
  Sender: FDA-Public Use
  Company Number: CA-BAYER-2011-018877

PATIENT
  Sex: Female

DRUGS (1)
  1. MIRENA [Suspect]
     Dosage: UNK
     Dates: start: 20090601, end: 20110105

REACTIONS (4)
  - PAIN [None]
  - UTERINE PERFORATION [None]
  - INTESTINAL PERFORATION [None]
  - PREGNANCY WITH CONTRACEPTIVE DEVICE [None]
